FAERS Safety Report 10798902 (Version 1)
Quarter: 2015Q1

REPORT INFORMATION
  Report Type: Report from Study
  Country: US (occurrence: US)
  Receive Date: 20150216
  Receipt Date: 20150216
  Transmission Date: 20150721
  Serious: No
  Sender: FDA-Public Use
  Company Number: US-ABBVIE-14K-163-1235838-00

PATIENT
  Age: 64 Year
  Sex: Female

DRUGS (6)
  1. HUMIRA [Suspect]
     Active Substance: ADALIMUMAB
     Indication: PSORIASIS
     Dates: start: 20140413, end: 20140413
  2. HUMIRA [Suspect]
     Active Substance: ADALIMUMAB
  3. CLARITIN [Concomitant]
     Active Substance: LORATADINE
     Indication: ASTHMA
  4. ALLEGRA [Concomitant]
     Active Substance: FEXOFENADINE HYDROCHLORIDE
     Indication: ASTHMA
  5. HUMIRA [Suspect]
     Active Substance: ADALIMUMAB
     Dates: start: 20140420, end: 20140420
  6. HUMIRA [Suspect]
     Active Substance: ADALIMUMAB
     Dates: start: 20140504, end: 20140504

REACTIONS (1)
  - Injection site pain [Not Recovered/Not Resolved]

NARRATIVE: CASE EVENT DATE: 20140413
